FAERS Safety Report 6635387-2 (Version None)
Quarter: 2010Q1

REPORT INFORMATION
  Report Type: 
  Country: None (occurrence: None)
  Receive Date: 20100315
  Receipt Date: 20100308
  Transmission Date: 20100710
  Serious: Yes (Hospitalization)
  Sender: FDA-Public Use
  Company Number: CO-GENENTECH-299095

PATIENT
  Sex: Female

DRUGS (2)
  1. MABTHERA [Suspect]
     Indication: NON-HODGKIN'S LYMPHOMA
     Dosage: 600 MG, Q21D
     Route: 042
     Dates: start: 20091001
  2. RECORMON [Concomitant]
     Indication: ANAEMIA
     Dosage: UNK
     Route: 058

REACTIONS (2)
  - CARDIAC DISORDER [None]
  - DEEP VEIN THROMBOSIS [None]
